FAERS Safety Report 8838759 (Version 2)
Quarter: 2013Q1

REPORT INFORMATION
  Report Type: Spontaneous
  Country: US (occurrence: US)
  Receive Date: 20121012
  Receipt Date: 20130121
  Transmission Date: 20140127
  Serious: No
  Sender: FDA-Public Use
  Company Number: US-009507513-1210USA005293

PATIENT
  Age: 39 Year
  Sex: Female
  Weight: 178.23 kg

DRUGS (2)
  1. IMPLANON [Suspect]
     Indication: CONTRACEPTION
     Dosage: 1 DF, 3 YEARS
     Route: 059
     Dates: start: 20090731
  2. INSULIN [Concomitant]
     Dosage: TWO DIFFERENT INSULINS

REACTIONS (4)
  - Medical device complication [Unknown]
  - Medical device complication [Unknown]
  - Device difficult to use [Unknown]
  - Incorrect drug administration duration [Unknown]
